FAERS Safety Report 9330635 (Version 1)
Quarter: 2013Q2

REPORT INFORMATION
  Report Type: Spontaneous
  Country: DE (occurrence: DE)
  Receive Date: 20130605
  Receipt Date: 20130605
  Transmission Date: 20140414
  Serious: Yes (Other)
  Sender: FDA-Public Use
  Company Number: DE-ROCHE-1224313

PATIENT
  Age: 62 Year
  Sex: Female
  Weight: 77 kg

DRUGS (3)
  1. AVASTIN [Suspect]
     Indication: OVARIAN CANCER
     Route: 042
     Dates: start: 20121210, end: 20130422
  2. TOPOTECAN [Suspect]
     Indication: OVARIAN CANCER
     Route: 042
     Dates: start: 20121126, end: 20130506
  3. DEXAMETHASONE [Concomitant]
     Dosage: (ANTIEMETIC DRUG) DURING FIVE FOLLOWING DAYS AT INTERVALS OF FOUR WEEKS
     Route: 042
     Dates: start: 20121126, end: 20130506

REACTIONS (1)
  - Pleural effusion [Unknown]
